FAERS Safety Report 7571057-4 (Version None)
Quarter: 2011Q2

REPORT INFORMATION
  Report Type: 
  Country: None (occurrence: None)
  Receive Date: 20110525
  Receipt Date: 20110208
  Transmission Date: 20111010
  Serious: No
  Sender: FDA-Public Use
  Company Number: 323066

PATIENT
  Age: 74 Year
  Sex: Female

DRUGS (4)
  1. AZITHROMYCIN [Suspect]
     Indication: LABYRINTHITIS
     Dosage: 250 MG
  2. VICTOZA [Suspect]
     Indication: TYPE 2 DIABETES MELLITUS
     Dosage: 0.6 MG, QD, SUBCUTANEOUS
     Route: 058
  3. NYSTATIN [Concomitant]
  4. MECLIZINE /00072801/ (MECLOZINE) [Concomitant]

REACTIONS (1)
  - BLOOD GLUCOSE INCREASED [None]
